FAERS Safety Report 4848200-0 (Version None)
Quarter: 2005Q4

REPORT INFORMATION
  Report Type: 
  Country: None (occurrence: None)
  Receive Date: 20051206
  Receipt Date: 20051121
  Transmission Date: 20060501
  Serious: Yes (Congenital Anomaly)
  Sender: FDA-Public Use
  Company Number: 12969

PATIENT

DRUGS (2)
  1. CYTARABINE [Suspect]
     Indication: ACUTE MYELOID LEUKAEMIA
     Route: 064
  2. DAUNORUBICIN [Suspect]
     Indication: ACUTE MYELOID LEUKAEMIA
     Route: 064

REACTIONS (4)
  - CONGENITAL IRIS ANOMALY [None]
  - DRUG EXPOSURE DURING PREGNANCY [None]
  - IRIS ADHESIONS [None]
  - PREMATURE BABY [None]
